FAERS Safety Report 6548006-0 (Version None)
Quarter: 2010Q1

REPORT INFORMATION
  Report Type: 
  Country: None (occurrence: None)
  Receive Date: 20100124
  Receipt Date: 20091214
  Transmission Date: 20100710
  Serious: No
  Sender: FDA-Public Use
  Company Number: US-ALEXION-A200901071

PATIENT

DRUGS (6)
  1. SOLIRIS [Suspect]
     Indication: PAROXYSMAL NOCTURNAL HAEMOGLOBINURIA
     Dosage: 600 MG, QWK
     Route: 042
     Dates: start: 20091005
  2. SOLIRIS [Suspect]
     Dosage: 900 MG, Q2WK
     Route: 042
     Dates: start: 20090101
  3. SOLIRIS [Suspect]
     Dosage: 600 MG, QWK
     Route: 042
  4. ANADROL [Suspect]
  5. PREDNISONE [Suspect]
     Dosage: 30 MG, QD
  6. PREDNISONE [Suspect]
     Dosage: 20 MG, QD

REACTIONS (4)
  - CUSHINGOID [None]
  - DRUG EFFECT DECREASED [None]
  - HEPATOTOXICITY [None]
  - LIVER FUNCTION TEST ABNORMAL [None]
